FAERS Safety Report 7874444-X (Version None)
Quarter: 2011Q3

REPORT INFORMATION
  Report Type: 
  Country: None (occurrence: None)
  Receive Date: 20110926
  Receipt Date: 20110425
  Transmission Date: 20111222
  Serious: No
  Sender: FDA-Public Use
  Company Number: 899537

PATIENT
  Sex: Female

DRUGS (1)
  1. CARBOPLATIN [Suspect]

REACTIONS (2)
  - SKIN BURNING SENSATION [None]
  - ACCIDENTAL EXPOSURE [None]
